FAERS Safety Report 6242095-9 (Version None)
Quarter: 2009Q2

REPORT INFORMATION
  Report Type: 
  Country: None (occurrence: None)
  Receive Date: 20090623
  Receipt Date: 20090623
  Transmission Date: 20091009
  Serious: Yes (Other)
  Sender: FDA-Public Use
  Company Number: US-PFIZER INC-2009213843

PATIENT
  Sex: Female

DRUGS (2)
  1. ZOLOFT [Suspect]
     Indication: DEPRESSION
     Dates: start: 19950101
  2. CYMBALTA [Suspect]
     Indication: FIBROMYALGIA
     Dates: start: 20070101

REACTIONS (5)
  - FIBROMYALGIA [None]
  - GAIT DISTURBANCE [None]
  - INTERVERTEBRAL DISC DEGENERATION [None]
  - MYALGIA [None]
  - PARKINSON'S DISEASE [None]
